FAERS Safety Report 23494032 (Version 6)
Quarter: 2024Q1

REPORT INFORMATION
  Report Type: Spontaneous
  Country: US (occurrence: US)
  Receive Date: 20240207
  Receipt Date: 20240328
  Transmission Date: 20240410
  Serious: No
  Sender: FDA-Public Use
  Company Number: US-PFIZER INC-202400018342

PATIENT
  Age: 35 Year
  Sex: Female

DRUGS (1)
  1. SOMATROPIN [Suspect]
     Active Substance: SOMATROPIN
     Indication: Hypopituitarism
     Dosage: 0.2 MILLIGRAMS SUB Q (SUBCUTANEOUS), ONCE DAILY
     Route: 058

REACTIONS (2)
  - Poor quality device used [Unknown]
  - Device defective [Unknown]
